FAERS Safety Report 7731194-8 (Version None)
Quarter: 2011Q3

REPORT INFORMATION
  Report Type: 
  Country: None (occurrence: None)
  Receive Date: 20110906
  Receipt Date: 20110830
  Transmission Date: 20111222
  Serious: Yes (Other)
  Sender: FDA-Public Use
  Company Number: PHHY2011GB77158

PATIENT
  Sex: Female

DRUGS (2)
  1. PACLITAXEL [Suspect]
     Indication: BREAST CANCER
     Dosage: UNK
  2. AVASTIN [Suspect]
     Indication: BREAST CANCER

REACTIONS (2)
  - RECTAL HAEMORRHAGE [None]
  - DIVERTICULUM [None]
